FAERS Safety Report 5415177-9 (Version None)
Quarter: 2007Q3

REPORT INFORMATION
  Report Type: 
  Country: None (occurrence: None)
  Receive Date: 20070814
  Receipt Date: 20070814
  Transmission Date: 20080115
  Serious: Yes (Other)
  Sender: FDA-Public Use
  Company Number: None

PATIENT
  Sex: Male
  Weight: 75.2971 kg

DRUGS (1)
  1. BACTRIM [Suspect]
     Indication: PROSTATITIS
     Dosage: 1  TWICE DAILY PO
     Route: 048
     Dates: start: 20070627, end: 20070810

REACTIONS (8)
  - ANOREXIA [None]
  - BREATH ODOUR [None]
  - DYSGEUSIA [None]
  - FATIGUE [None]
  - GASTRIC DISORDER [None]
  - NAUSEA [None]
  - PARAESTHESIA [None]
  - PRURITUS [None]
